FAERS Safety Report 17225662 (Version 1)
Quarter: 2020Q1

REPORT INFORMATION
  Report Type: Spontaneous
  Country: US (occurrence: US)
  Receive Date: 20200102
  Receipt Date: 20200102
  Transmission Date: 20200409
  Serious: Yes (Hospitalization)
  Sender: FDA-Public Use
  Company Number: US-ASTRAZENECA-2019SF91459

PATIENT
  Sex: Male
  Weight: 5.7 kg

DRUGS (2)
  1. SYNAGIS [Suspect]
     Active Substance: PALIVIZUMAB
     Indication: PREMATURE BABY
     Route: 030
  2. POLY-VI-SOL [Concomitant]
     Active Substance: VITAMINS
     Dosage: 750-35/ML

REACTIONS (2)
  - Product dose omission [Unknown]
  - Acute respiratory distress syndrome [Unknown]
